FAERS Safety Report 10281681 (Version 2)
Quarter: 2014Q3

REPORT INFORMATION
  Report Type: Report from Study
  Country: RU (occurrence: RU)
  Receive Date: 20140707
  Receipt Date: 20140710
  Transmission Date: 20150326
  Serious: Yes (Other)
  Sender: FDA-Public Use
  Company Number: RU-SA-2014SA083422

PATIENT
  Age: 66 Year
  Sex: Male
  Weight: 70 kg

DRUGS (3)
  1. PLAVIX [Suspect]
     Active Substance: CLOPIDOGREL BISULFATE
     Indication: THROMBOSIS PROPHYLAXIS
     Route: 048
     Dates: start: 201401
  2. THROMBO [Concomitant]
     Dosage: ROUTE- PER OS?100MG DAILY
     Route: 048
     Dates: start: 201401
  3. CONCOR [Concomitant]
     Active Substance: BISOPROLOL FUMARATE
     Dosage: ROUTE- PER OS
     Route: 048
     Dates: start: 201401

REACTIONS (4)
  - Haematoma [Recovered/Resolved]
  - Paraesthesia [Unknown]
  - Contusion [Not Recovered/Not Resolved]
  - Angina pectoris [Not Recovered/Not Resolved]

NARRATIVE: CASE EVENT DATE: 2014
